FAERS Safety Report 9943227 (Version 2)
Quarter: 2014Q2

REPORT INFORMATION
  Report Type: Spontaneous
  Country: JP (occurrence: JP)
  Receive Date: 20140303
  Receipt Date: 20140421
  Transmission Date: 20141212
  Serious: Yes (Hospitalization)
  Sender: FDA-Public Use
  Company Number: JP-B.I. PHARMACEUTICALS,INC./RIDGEFIELD-2014-BI-09342NB

PATIENT
  Age: 72 Year
  Sex: Female
  Weight: 45.5 kg

DRUGS (2)
  1. PRAZAXA [Suspect]
     Indication: CEREBROVASCULAR ACCIDENT PROPHYLAXIS
     Dosage: 220 MG
     Route: 065
     Dates: start: 20130222
  2. PARIET / SODIUM RABEPRAZOLE [Concomitant]
     Dosage: 10 MG
     Route: 065

REACTIONS (1)
  - Road traffic accident [Unknown]
